FAERS Safety Report 6642865-9 (Version None)
Quarter: 2010Q1

REPORT INFORMATION
  Report Type: 
  Country: None (occurrence: None)
  Receive Date: 20100319
  Receipt Date: 20100310
  Transmission Date: 20100710
  Serious: Yes (Hospitalization, Other)
  Sender: FDA-Public Use
  Company Number: FR-ABBOTT-09P-056-0603970-00

PATIENT
  Sex: Female
  Weight: 48 kg

DRUGS (4)
  1. NORVIR [Suspect]
     Indication: HIV INFECTION
     Route: 048
     Dates: start: 20091007, end: 20091014
  2. VOGALENE [Suspect]
     Indication: NAUSEA
     Dosage: ONCE
     Dates: start: 20091013, end: 20091013
  3. KIVEXA [Suspect]
     Indication: HIV INFECTION
     Route: 048
     Dates: start: 20091007, end: 20091014
  4. RAYATAZ [Suspect]
     Indication: HIV INFECTION
     Route: 048
     Dates: start: 20091007, end: 20091014

REACTIONS (6)
  - ANGIOEDEMA [None]
  - LIVEDO RETICULARIS [None]
  - NAUSEA [None]
  - PRURIGO [None]
  - SKIN LESION [None]
  - SWELLING FACE [None]
